FAERS Safety Report 5429985-1 (Version None)
Quarter: 2007Q3

REPORT INFORMATION
  Report Type: 
  Country: None (occurrence: None)
  Receive Date: 20070829
  Receipt Date: 20070808
  Transmission Date: 20080115
  Serious: No
  Sender: FDA-Public Use
  Company Number: US-BOEHRINGER INGELHEIM PHARMACEUTICALS, INC.-2007-BP-18875BP

PATIENT
  Sex: Male

DRUGS (3)
  1. MIRAPEX [Suspect]
     Indication: MUSCLE SPASMS
     Route: 048
     Dates: start: 20070701, end: 20070806
  2. LOPRESSOR [Concomitant]
     Indication: HYPERTENSION
  3. ASPIRIN [Concomitant]

REACTIONS (2)
  - FATIGUE [None]
  - SUDDEN ONSET OF SLEEP [None]
